FAERS Safety Report 7320788-X (Version None)
Quarter: 2011Q1

REPORT INFORMATION
  Report Type: 
  Country: None (occurrence: None)
  Receive Date: 20110216
  Receipt Date: 20110125
  Transmission Date: 20110831
  Serious: No
  Sender: FDA-Public Use
  Company Number: 2011-00043

PATIENT
  Age: 72 Year
  Sex: Female
  Weight: 56.6996 kg

DRUGS (1)
  1. ZICAM COLD REMEDY PLUS ORAL MIST [Suspect]
     Dosage: BID X 4 DAYS
     Dates: start: 20101202, end: 20101205

REACTIONS (2)
  - AGEUSIA [None]
  - PARAESTHESIA ORAL [None]
